FAERS Safety Report 25357571 (Version 1)
Quarter: 2025Q2

REPORT INFORMATION
  Report Type: Report from Study
  Country: CA (occurrence: CA)
  Receive Date: 20250526
  Receipt Date: 20250526
  Transmission Date: 20250717
  Serious: Yes (Other)
  Sender: TAKEDA
  Company Number: CA-TAKEDA-2024TUS089525

PATIENT
  Sex: Female

DRUGS (12)
  1. VEDOLIZUMAB [Suspect]
     Active Substance: VEDOLIZUMAB
     Indication: Crohn^s disease
     Dates: start: 20240822, end: 20241010
  2. PANTOPRAZOLE SODIUM [Suspect]
     Active Substance: PANTOPRAZOLE SODIUM
     Indication: Product used for unknown indication
  3. TACROLIMUS [Concomitant]
     Active Substance: TACROLIMUS
  4. IMURAN [Concomitant]
     Active Substance: AZATHIOPRINE
  5. ATORVASTATIN [Concomitant]
     Active Substance: ATORVASTATIN
  6. VITAMIN D [Concomitant]
     Active Substance: VITAMIN D NOS
  7. ASPIRIN [Concomitant]
     Active Substance: ASPIRIN
  8. MAGNESIUM [Concomitant]
     Active Substance: MAGNESIUM
  9. CALCIUM [Concomitant]
     Active Substance: CALCIUM
  10. ESTRADIOL [Concomitant]
     Active Substance: ESTRADIOL
  11. B12 [Concomitant]
     Dosage: UNK UNK, MONTHLY
  12. ARANESP [Concomitant]
     Active Substance: DARBEPOETIN ALFA

REACTIONS (6)
  - Pruritus [Recovered/Resolved]
  - Dermatitis contact [Unknown]
  - Norovirus infection [Recovering/Resolving]
  - Drug ineffective [Unknown]
  - Anal fissure [Unknown]
  - Arthralgia [Unknown]
